FAERS Safety Report 4606888-3 (Version None)
Quarter: 2005Q1

REPORT INFORMATION
  Report Type: 
  Country: None (occurrence: None)
  Receive Date: 20050314
  Receipt Date: 20050201
  Transmission Date: 20050727
  Serious: Yes (Death)
  Sender: FDA-Public Use
  Company Number: PHEH2005US01533

PATIENT
  Age: 57 Year
  Sex: Male

DRUGS (9)
  1. CLOZARIL [Suspect]
     Indication: SCHIZOPHRENIA
     Dosage: 450 MG, QD
     Route: 048
     Dates: start: 20040301
  2. PAXIL [Concomitant]
     Indication: ABNORMAL BEHAVIOUR
     Dosage: 30 MG, QD
  3. KLONOPIN [Concomitant]
     Indication: AGITATION
     Dosage: 1.5 MG, QD
  4. SEROQUEL [Concomitant]
     Indication: ABNORMAL BEHAVIOUR
  5. VERAPAMIL [Concomitant]
     Indication: HYPERTENSION
  6. KEPPRA [Concomitant]
     Indication: COMPLEX PARTIAL SEIZURES
     Dosage: 1500 MG, BID
  7. TRILEPTAL [Concomitant]
     Indication: COMPLEX PARTIAL SEIZURES
     Dosage: 600 MG, BID
  8. ASPIRIN [Concomitant]
  9. HEP-B-VAX [Suspect]
     Dates: end: 20041122

REACTIONS (1)
  - CHOKING [None]
